FAERS Safety Report 7770115-9 (Version None)
Quarter: 2011Q3

REPORT INFORMATION
  Report Type: 
  Country: None (occurrence: None)
  Receive Date: 20110922
  Receipt Date: 20101025
  Transmission Date: 20111222
  Serious: No
  Sender: FDA-Public Use
  Company Number: US-ASTRAZENECA-2010SE50533

PATIENT
  Age: 59 Year
  Sex: Female

DRUGS (3)
  1. ARIMIDEX [Suspect]
     Route: 048
     Dates: start: 20070101
  2. SEROQUEL [Suspect]
     Indication: FEELING OF RELAXATION
     Route: 048
     Dates: start: 20050101
  3. ARIMIDEX [Suspect]
     Indication: BREAST CANCER
     Dosage: GENERIC ANASTRAZOLE
     Route: 048

REACTIONS (3)
  - WHEEZING [None]
  - HOT FLUSH [None]
  - FUNGAL INFECTION [None]
